FAERS Safety Report 24162376 (Version 1)
Quarter: 2024Q3

REPORT INFORMATION
  Report Type: Spontaneous
  Country: JP (occurrence: JP)
  Receive Date: 20240801
  Receipt Date: 20240801
  Transmission Date: 20241017
  Serious: Yes (Other)
  Sender: VIFOR
  Company Number: JP-CHUGAI-2024023885

PATIENT
  Sex: Female
  Weight: 0.991 kg

DRUGS (1)
  1. MIRCERA [Suspect]
     Active Substance: METHOXY POLYETHYLENE GLYCOL-EPOETIN BETA
     Indication: Nephrogenic anaemia
     Route: 064

REACTIONS (6)
  - Neonatal respiratory distress syndrome [Recovering/Resolving]
  - Apnoeic attack [Unknown]
  - Premature baby [Unknown]
  - Low birth weight baby [Unknown]
  - Anaemia neonatal [Unknown]
  - Foetal exposure during pregnancy [Unknown]
